FAERS Safety Report 24542386 (Version 2)
Quarter: 2024Q4

REPORT INFORMATION
  Report Type: Report from Study
  Country: US (occurrence: US)
  Receive Date: 20241023
  Receipt Date: 20241112
  Transmission Date: 20250115
  Serious: Yes (Other)
  Sender: ABBVIE
  Company Number: US-ABBVIE-5970839

PATIENT
  Sex: Female

DRUGS (3)
  1. ARMOUR THYROID [Suspect]
     Active Substance: THYROID, PORCINE
     Indication: Product used for unknown indication
     Dosage: FORM STRENGTH: 180 MG
     Route: 048
     Dates: start: 1999
  2. SYNTHROID [Suspect]
     Active Substance: LEVOTHYROXINE SODIUM
     Indication: Product used for unknown indication
     Route: 048
  3. ELIQUIS [Concomitant]
     Active Substance: APIXABAN
     Indication: Product used for unknown indication

REACTIONS (9)
  - Rehabilitation therapy [Unknown]
  - Surgery [Unknown]
  - Weight increased [Unknown]
  - Gastrooesophageal reflux disease [Unknown]
  - Pharyngeal disorder [Unknown]
  - Oropharyngeal pain [Unknown]
  - Gastrointestinal disorder [Unknown]
  - Mouth injury [Unknown]
  - Allergic reaction to excipient [Unknown]
